FAERS Safety Report 10168374 (Version 2)
Quarter: 2014Q2

REPORT INFORMATION
  Report Type: Spontaneous
  Country: FR (occurrence: FR)
  Receive Date: 20140513
  Receipt Date: 20140623
  Transmission Date: 20141212
  Serious: Yes (Other)
  Sender: FDA-Public Use
  Company Number: FR-AMGEN-FRASP2014033895

PATIENT
  Age: 70 Year
  Sex: Male

DRUGS (13)
  1. NEUPOGEN [Suspect]
     Indication: PRODUCT USED FOR UNKNOWN INDICATION
     Dosage: 12 UI (48 UI, 1 IN 4 DAYS)
     Route: 042
     Dates: start: 20140326, end: 20140421
  2. TAZOCILLINE [Suspect]
     Indication: PRODUCT USED FOR UNKNOWN INDICATION
     Dosage: 16 G (4 G, 4 IN 1 DAY)
     Route: 042
     Dates: start: 20140325, end: 20140415
  3. OROCAL                             /00944201/ [Suspect]
     Indication: PRODUCT USED FOR UNKNOWN INDICATION
     Dosage: 1 DF (1 DF, 1 IN 1 DAY)
     Route: 048
     Dates: start: 20140409
  4. AERIUS                             /01009701/ [Suspect]
     Indication: PRODUCT USED FOR UNKNOWN INDICATION
     Dosage: 5 MG (5 MG, 1 IN 1 DAY)
     Route: 048
     Dates: start: 20140330
  5. AMLODIPINE [Concomitant]
     Dosage: 10 MG/DAY
  6. PRAVASTATIN [Concomitant]
     Dosage: 20 MG/DAY
  7. KARDEGIC [Concomitant]
     Dosage: 160 MG/DAY
  8. MICARDIS PLUS [Concomitant]
     Dosage: UNK
  9. BISOPROLOL [Concomitant]
     Dosage: 10 MG/DAY
  10. HYDROCHLOROTHIAZIDE [Concomitant]
     Dosage: UNK
  11. LEXOMIL [Concomitant]
     Dosage: UNK
  12. NAFTIDROFURYL [Concomitant]
     Dosage: UNK
  13. VALACYCLOVIR [Concomitant]
     Dosage: UNK

REACTIONS (1)
  - Vascular purpura [Not Recovered/Not Resolved]
